FAERS Safety Report 15864675 (Version 1)
Quarter: 2019Q1

REPORT INFORMATION
  Report Type: Spontaneous
  Country: US (occurrence: US)
  Receive Date: 20190124
  Receipt Date: 20190124
  Transmission Date: 20190417
  Serious: No
  Sender: FDA-Public Use
  Company Number: US-ALLERGAN-1811934US

PATIENT
  Sex: Female

DRUGS (3)
  1. PREDNISOLONE ACETATE, 1.0% [Suspect]
     Active Substance: PREDNISOLONE ACETATE
     Dosage: UNK, QD
     Route: 047
     Dates: start: 201802
  2. PREDNISOLONE ACETATE, 1.0% [Suspect]
     Active Substance: PREDNISOLONE ACETATE
     Dosage: UNK, BID
     Route: 047
     Dates: start: 201802
  3. PREDNISOLONE ACETATE, 1.0% [Suspect]
     Active Substance: PREDNISOLONE ACETATE
     Indication: PRODUCT USED FOR UNKNOWN INDICATION
     Dosage: UNK, QID
     Route: 047
     Dates: start: 201802

REACTIONS (2)
  - Accidental exposure to product [Unknown]
  - Product dropper issue [Unknown]

NARRATIVE: CASE EVENT DATE: 201802
